FAERS Safety Report 7835059-2 (Version None)
Quarter: 2011Q4

REPORT INFORMATION
  Report Type: 
  Country: None (occurrence: None)
  Receive Date: 20111020
  Receipt Date: 20111006
  Transmission Date: 20120403
  Serious: Yes (Death, Life-Threatening, Hospitalization, Other)
  Sender: FDA-Public Use
  Company Number: FK201102215

PATIENT
  Age: 65 Year
  Sex: Male

DRUGS (2)
  1. METHYLPREDNISOLONE [Suspect]
     Indication: PRURITUS GENERALISED
     Dosage: 40 MG, INTRAVENOUS (NOT OTHERWISE SPECIFIED)
     Route: 042
  2. METHYLPREDNISOLONE [Suspect]
     Indication: ERYTHEMA
     Dosage: 40 MG, INTRAVENOUS (NOT OTHERWISE SPECIFIED)
     Route: 042

REACTIONS (6)
  - SKIN LESION [None]
  - TACHYCARDIA [None]
  - PYREXIA [None]
  - SKIN EXFOLIATION [None]
  - BLISTER [None]
  - OROPHARYNGEAL BLISTERING [None]
